FAERS Safety Report 20418963 (Version 1)
Quarter: 2022Q1

REPORT INFORMATION
  Report Type: Spontaneous
  Country: SO (occurrence: SO)
  Receive Date: 20220202
  Receipt Date: 20220202
  Transmission Date: 20220423
  Serious: Yes (Hospitalization, Other)
  Sender: FDA-Public Use
  Company Number: SO-IPCA LABORATORIES LIMITED-IPC-2022-SO-000108

PATIENT

DRUGS (1)
  1. METOCLOPRAMIDE [Suspect]
     Active Substance: METOCLOPRAMIDE
     Indication: Vomiting
     Dosage: 10 MILLIGRAM, TID
     Route: 065

REACTIONS (5)
  - Dystonia [Recovering/Resolving]
  - Muscle spasticity [Recovering/Resolving]
  - Protrusion tongue [Recovering/Resolving]
  - Dysarthria [Recovering/Resolving]
  - Drooling [Recovering/Resolving]
